FAERS Safety Report 8599327-1 (Version None)
Quarter: 2012Q3

REPORT INFORMATION
  Report Type: 
  Country: None (occurrence: None)
  Receive Date: 20120816
  Receipt Date: 20120504
  Transmission Date: 20120928
  Serious: Yes (Hospitalization)
  Sender: FDA-Public Use
  Company Number: US-AMGEN-USASP2012008999

PATIENT
  Age: 14 Year
  Sex: Male
  Weight: 62 kg

DRUGS (5)
  1. MATULANE [Suspect]
     Indication: HODGKIN'S DISEASE
     Dosage: 150 MG, QD
     Route: 048
     Dates: start: 20111222
  2. HYDROCODONE [Concomitant]
     Indication: PAIN
     Dosage: 10 MG, PRN
     Route: 048
  3. PREDNISONE TAB [Concomitant]
     Indication: HODGKIN'S DISEASE
     Dosage: 35 MG, BID
     Route: 048
  4. NEUPOGEN [Suspect]
     Indication: PRODUCT USED FOR UNKNOWN INDICATION
     Dosage: 300 MUG, QD
     Route: 058
     Dates: start: 20110121, end: 20110127
  5. ZOFRAN [Concomitant]
     Indication: NAUSEA
     Dosage: 8 MG, PRN
     Route: 048

REACTIONS (3)
  - BONE PAIN [None]
  - BACK PAIN [None]
  - INJECTION SITE PAIN [None]
